FAERS Safety Report 11593086 (Version 2)
Quarter: 2015Q4

REPORT INFORMATION
  Report Type: Spontaneous
  Country: BR (occurrence: BR)
  Receive Date: 20151005
  Receipt Date: 20151019
  Transmission Date: 20160304
  Serious: Yes (Life-Threatening)
  Sender: FDA-Public Use
  Company Number: BR-JNJFOC-20151002256

PATIENT
  Age: 65 Year
  Sex: Female

DRUGS (4)
  1. GLIFAGE [Concomitant]
     Active Substance: METFORMIN HYDROCHLORIDE
     Indication: TYPE 2 DIABETES MELLITUS
     Route: 065
  2. INVOKANA [Suspect]
     Active Substance: CANAGLIFLOZIN
     Indication: TYPE 2 DIABETES MELLITUS
     Dosage: ONE IN MORNING AND OTHER AT NIGHT
     Route: 065
     Dates: start: 201501, end: 20150930
  3. LOSARTAN. [Concomitant]
     Active Substance: LOSARTAN
     Dosage: FOR LONG TIME
     Route: 065
  4. INVOKANA [Suspect]
     Active Substance: CANAGLIFLOZIN
     Indication: SWELLING
     Dosage: ONE IN MORNING AND OTHER AT NIGHT
     Route: 065
     Dates: start: 201501, end: 20150930

REACTIONS (17)
  - Muscular weakness [Unknown]
  - Thirst [Not Recovered/Not Resolved]
  - Peripheral swelling [Unknown]
  - Drug prescribing error [Unknown]
  - Product use issue [Not Recovered/Not Resolved]
  - Feeling hot [Unknown]
  - Hypoaesthesia [Unknown]
  - Blood pressure increased [Unknown]
  - Influenza [Recovering/Resolving]
  - Dyspnoea [Not Recovered/Not Resolved]
  - Heart rate increased [Unknown]
  - Visual acuity reduced [Unknown]
  - Therapeutic response unexpected [Unknown]
  - Insomnia [Unknown]
  - Amnesia [Not Recovered/Not Resolved]
  - Pruritus [Not Recovered/Not Resolved]
  - Malaise [Not Recovered/Not Resolved]

NARRATIVE: CASE EVENT DATE: 20150930
